FAERS Safety Report 10396133 (Version 1)
Quarter: 2014Q1

REPORT INFORMATION
  Report Type: Spontaneous
  Country: US (occurrence: None)
  Receive Date: 20130724
  Receipt Date: 20130724
  Transmission Date: 20141002
  Serious: Yes (Other)
  Sender: FDA-Public Use
  Company Number: PHEH2012US002193

PATIENT
  Sex: Male
  Weight: 52.2 kg

DRUGS (3)
  1. GLEEVEC (IMATINIB) UNKNOWN [Suspect]
     Route: 048
  2. ACETYLSALICYLIC ACID [Concomitant]
  3. BLOOD TRANSFUSION, AUXILIARY PRODUCTS (NO INGREDIENTS/SUBSTANCES) [Concomitant]

REACTIONS (3)
  - Gastrointestinal ulcer haemorrhage [None]
  - Haemoglobin decreased [None]
  - Drug ineffective [None]
